FAERS Safety Report 5927031-4 (Version None)
Quarter: 2008Q4

REPORT INFORMATION
  Report Type: 
  Country: None (occurrence: None)
  Receive Date: 20081022
  Receipt Date: 20081013
  Transmission Date: 20090506
  Serious: Yes (Hospitalization)
  Sender: FDA-Public Use
  Company Number: PHHY2008FR24757

PATIENT
  Sex: Female

DRUGS (4)
  1. VOLTAREN [Suspect]
     Indication: BACK PAIN
     Dosage: UNK
     Dates: start: 20080901, end: 20080904
  2. NEO-CODION [Concomitant]
  3. LAMICTAL [Concomitant]
  4. CITALOPRAM HYDROBROMIDE [Concomitant]
     Indication: BIPOLAR I DISORDER

REACTIONS (5)
  - ACUTE RESPIRATORY DISTRESS SYNDROME [None]
  - CONDITION AGGRAVATED [None]
  - ENDOTRACHEAL INTUBATION [None]
  - LUNG INFECTION [None]
  - PNEUMONIA STAPHYLOCOCCAL [None]
